FAERS Safety Report 17676376 (Version 1)
Quarter: 2020Q2

REPORT INFORMATION
  Report Type: Spontaneous
  Country: US (occurrence: US)
  Receive Date: 20200416
  Receipt Date: 20200416
  Transmission Date: 20200714
  Serious: Yes (Disabling)
  Sender: FDA-Public Use
  Company Number: None

PATIENT
  Age: 55 Year
  Sex: Female
  Weight: 105.3 kg

DRUGS (1)
  1. EQUATE COMFORT [Suspect]
     Active Substance: CARBOXYMETHYLCELLULOSE SODIUM\HYPROMELLOSES
     Indication: DRY EYE
     Dosage: ?          QUANTITY:2 DROP(S);?
     Route: 047

REACTIONS (7)
  - Recalled product administered [None]
  - Lacrimation increased [None]
  - Visual impairment [None]
  - Impaired work ability [None]
  - Diplopia [None]
  - Eye pain [None]
  - Vision blurred [None]
